FAERS Safety Report 4475972-X (Version None)
Quarter: 2004Q4

REPORT INFORMATION
  Report Type: 
  Country: None (occurrence: None)
  Receive Date: 20041012
  Receipt Date: 20040927
  Transmission Date: 20050328
  Serious: Yes (Hospitalization)
  Sender: FDA-Public Use
  Company Number: 2004-BP-06250BP

PATIENT
  Age: 63 Year
  Sex: Female

DRUGS (1)
  1. SPIRIVA [Suspect]
     Dosage: NR (18 MCG), IH
     Route: 055

REACTIONS (2)
  - CARDIAC FAILURE CONGESTIVE [None]
  - DRUG INEFFECTIVE [None]
